FAERS Safety Report 23898188 (Version 1)
Quarter: 2024Q2

REPORT INFORMATION
  Report Type: Spontaneous
  Country: PL (occurrence: PL)
  Receive Date: 20240524
  Receipt Date: 20240524
  Transmission Date: 20240716
  Serious: Yes (Other)
  Sender: FDA-Public Use
  Company Number: PL-TEVA-VS-3182957

PATIENT
  Age: 25 Year
  Sex: Male

DRUGS (6)
  1. VENLAFAXINE [Suspect]
     Active Substance: VENLAFAXINE HYDROCHLORIDE
     Indication: Migraine prophylaxis
     Route: 065
  2. TOPIRAMATE [Suspect]
     Active Substance: TOPIRAMATE
     Indication: Migraine
     Dosage: TOPIRAMATE 50-0-50 -} 100-0-100 MG
     Route: 065
  3. AJOVY [Suspect]
     Active Substance: FREMANEZUMAB-VFRM
     Indication: Migraine
     Route: 058
  4. ZOLMITRIPTAN [Suspect]
     Active Substance: ZOLMITRIPTAN
     Indication: Migraine
     Route: 065
  5. METOPROLOL [Concomitant]
     Active Substance: METOPROLOL
     Indication: Migraine prophylaxis
     Dosage: ? TBL - DOSE TOO LOW.
     Route: 065
  6. FLUNARIZINE [Concomitant]
     Active Substance: FLUNARIZINE
     Indication: Migraine prophylaxis
     Route: 065

REACTIONS (6)
  - Nephrolithiasis [Unknown]
  - Depressed mood [Not Recovered/Not Resolved]
  - Somnolence [Unknown]
  - Inappropriate schedule of product administration [Unknown]
  - Therapeutic product effect variable [Unknown]
  - Off label use [Unknown]
